FAERS Safety Report 12220884 (Version 3)
Quarter: 2017Q4

REPORT INFORMATION
  Report Type: Spontaneous
  Country: US (occurrence: US)
  Receive Date: 20160330
  Receipt Date: 20171010
  Transmission Date: 20180320
  Serious: No
  Sender: FDA-Public Use
  Company Number: US-PFIZER INC-2016151341

PATIENT
  Age: 47 Year
  Sex: Female
  Weight: 51.7 kg

DRUGS (4)
  1. VENLAFAXINE HCL [Suspect]
     Active Substance: VENLAFAXINE HYDROCHLORIDE
     Indication: ANXIETY
     Dosage: 75 MG, UNK
  2. NEURONTIN [Concomitant]
     Active Substance: GABAPENTIN
     Indication: ANXIETY
     Dosage: 400 MG, UNK, (ONCE)
  3. VENLAFAXINE HCL [Suspect]
     Active Substance: VENLAFAXINE HYDROCHLORIDE
     Indication: DEPRESSION
     Dosage: 150 MG, UNK
  4. NEURONTIN [Concomitant]
     Active Substance: GABAPENTIN
     Indication: HEADACHE

REACTIONS (3)
  - Drug ineffective [Unknown]
  - Anxiety [Unknown]
  - Nervousness [Unknown]
